FAERS Safety Report 18450684 (Version 2)
Quarter: 2020Q4

REPORT INFORMATION
  Report Type: Report from Study
  Country: None (occurrence: US)
  Receive Date: 20201102
  Receipt Date: 20201227
  Transmission Date: 20210114
  Serious: Yes (Other)
  Sender: FDA-Public Use
  Company Number: US-ABBVIE-20K-163-3627955-00

PATIENT
  Age: 71 Year
  Sex: Female

DRUGS (3)
  1. HUMIRA [Suspect]
     Active Substance: ADALIMUMAB
     Indication: CROHN^S DISEASE
     Route: 058
  2. HUMIRA [Suspect]
     Active Substance: ADALIMUMAB
     Indication: CROHN^S DISEASE
     Dosage: CITRATE FREE
     Route: 058
     Dates: end: 202010
  3. HUMIRA [Suspect]
     Active Substance: ADALIMUMAB
     Dosage: CITRATE FREE
     Route: 058
     Dates: start: 202010

REACTIONS (8)
  - Crohn^s disease [Not Recovered/Not Resolved]
  - Adverse drug reaction [Unknown]
  - Frequent bowel movements [Not Recovered/Not Resolved]
  - Abdominal adhesions [Unknown]
  - Inflammatory bowel disease [Unknown]
  - Injection site pain [Recovered/Resolved]
  - Gastrointestinal disorder [Unknown]
  - Pain [Unknown]

NARRATIVE: CASE EVENT DATE: 2020
